FAERS Safety Report 7522124-2 (Version None)
Quarter: 2011Q2

REPORT INFORMATION
  Report Type: 
  Country: None (occurrence: None)
  Receive Date: 20110603
  Receipt Date: 20110525
  Transmission Date: 20111010
  Serious: Yes (Hospitalization)
  Sender: FDA-Public Use
  Company Number: US-JNJFOC-20110200401

PATIENT
  Sex: Female
  Weight: 99.79 kg

DRUGS (2)
  1. RISPERDAL CONSTA [Suspect]
     Indication: SCHIZOAFFECTIVE DISORDER
     Route: 030
  2. WELLBUTRIN [Concomitant]
     Indication: DEPRESSION
     Route: 048
     Dates: start: 19910101

REACTIONS (9)
  - PANIC ATTACK [None]
  - BACK PAIN [None]
  - FEELING ABNORMAL [None]
  - CHRONIC OBSTRUCTIVE PULMONARY DISEASE [None]
  - ANXIETY [None]
  - NECK PAIN [None]
  - MOOD ALTERED [None]
  - BRAIN NEOPLASM BENIGN [None]
  - HALLUCINATION, OLFACTORY [None]
